FAERS Safety Report 5968821-1 (Version None)
Quarter: 2008Q4

REPORT INFORMATION
  Report Type: 
  Country: None (occurrence: None)
  Receive Date: 20081126
  Receipt Date: 20081118
  Transmission Date: 20090506
  Serious: Yes (Other)
  Sender: FDA-Public Use
  Company Number: CA-JNJFOC-20081105048

PATIENT
  Sex: Male

DRUGS (3)
  1. REMICADE [Suspect]
     Dosage: 3RD INFUSION
     Route: 065
  2. REMICADE [Suspect]
     Dosage: 2ND INFUSION
     Route: 065
  3. REMICADE [Suspect]
     Indication: COLITIS ULCERATIVE
     Dosage: 1ST INFUSION
     Route: 065

REACTIONS (5)
  - HEADACHE [None]
  - PAIN IN JAW [None]
  - PYREXIA [None]
  - SWELLING FACE [None]
  - THIRST [None]
